FAERS Safety Report 12071019 (Version 1)
Quarter: 2016Q1

REPORT INFORMATION
  Report Type: Spontaneous
  Country: US (occurrence: US)
  Receive Date: 20160211
  Receipt Date: 20160211
  Transmission Date: 20160526
  Serious: Yes (Other)
  Sender: FDA-Public Use
  Company Number: US-ENDO PHARMACEUTICALS INC.-2015-003990

PATIENT
  Age: 60 Year
  Sex: Male
  Weight: 79.9 kg

DRUGS (2)
  1. LIPITOR [Concomitant]
     Active Substance: ATORVASTATIN CALCIUM
     Indication: PRODUCT USED FOR UNKNOWN INDICATION
     Route: 065
  2. XIAFLEX [Suspect]
     Active Substance: COLLAGENASE CLOSTRIDIUM HISTOLYTICUM
     Indication: PEYRONIE^S DISEASE
     Route: 065
     Dates: start: 201510, end: 201510

REACTIONS (5)
  - Blood blister [Unknown]
  - Penile swelling [Not Recovered/Not Resolved]
  - Penile haemorrhage [Unknown]
  - Penile pain [Not Recovered/Not Resolved]
  - Penile contusion [Unknown]

NARRATIVE: CASE EVENT DATE: 201510
